FAERS Safety Report 14232185 (Version 6)
Quarter: 2018Q2

REPORT INFORMATION
  Report Type: Report from Study
  Country: US (occurrence: US)
  Receive Date: 20171128
  Receipt Date: 20180516
  Transmission Date: 20180711
  Serious: Yes (Hospitalization, Other)
  Sender: FDA-Public Use
  Company Number: US-B.I. PHARMACEUTICALS,INC./RIDGEFIELD-2017-BI-057460

PATIENT
  Sex: Male

DRUGS (2)
  1. OFEV [Suspect]
     Active Substance: NINTEDANIB
     Route: 048
     Dates: start: 20171019, end: 20180405
  2. OFEV [Suspect]
     Active Substance: NINTEDANIB
     Indication: IDIOPATHIC PULMONARY FIBROSIS
     Route: 048
     Dates: start: 20171009

REACTIONS (15)
  - Blood pressure increased [Unknown]
  - Dysgeusia [Unknown]
  - Oxygen saturation decreased [Unknown]
  - Stomatitis [Unknown]
  - Diarrhoea [Recovered/Resolved]
  - Oral pain [Unknown]
  - Productive cough [Unknown]
  - Pneumonia [Unknown]
  - Gingival pain [Unknown]
  - Ulcer [Recovered/Resolved]
  - Diarrhoea [Unknown]
  - Dyspnoea [Unknown]
  - Diarrhoea [Not Recovered/Not Resolved]
  - Decreased appetite [Unknown]
  - Cough [Unknown]
